FAERS Safety Report 25401455 (Version 1)
Quarter: 2025Q2

REPORT INFORMATION
  Report Type: Report from Study
  Country: ES (occurrence: ES)
  Receive Date: 20250605
  Receipt Date: 20250605
  Transmission Date: 20250716
  Serious: Yes (Other)
  Sender: AVERITAS
  Company Number: ES-GRUNENTHAL-2025-107806

PATIENT
  Age: 57 Year
  Sex: Male

DRUGS (3)
  1. QUTENZA [Suspect]
     Active Substance: CAPSAICIN
     Indication: Procedural pain
     Route: 003
     Dates: start: 20250220, end: 20250220
  2. QUTENZA [Suspect]
     Active Substance: CAPSAICIN
     Indication: Traumatic pain
  3. QUTENZA [Suspect]
     Active Substance: CAPSAICIN
     Indication: Neuralgia

REACTIONS (2)
  - Application site inflammation [Recovered/Resolved]
  - Application site pain [Recovered/Resolved]

NARRATIVE: CASE EVENT DATE: 20250220
